APPROVED DRUG PRODUCT: LIDOCAINE HYDROCHLORIDE
Active Ingredient: LIDOCAINE HYDROCHLORIDE
Strength: 4%
Dosage Form/Route: SOLUTION;TOPICAL
Application: A040710 | Product #001 | TE Code: AT
Applicant: LANNETT CO INC
Approved: Feb 27, 2007 | RLD: No | RS: No | Type: RX